FAERS Safety Report 7080531-9 (Version None)
Quarter: 2010Q4

REPORT INFORMATION
  Report Type: 
  Country: None (occurrence: None)
  Receive Date: 20101103
  Receipt Date: 20101022
  Transmission Date: 20110411
  Serious: Yes (Hospitalization, Other)
  Sender: FDA-Public Use
  Company Number: CA-JNJFOC-20101005614

PATIENT
  Sex: Male
  Weight: 81.65 kg

DRUGS (10)
  1. REMICADE [Suspect]
     Indication: CROHN'S DISEASE
     Route: 042
  2. REMICADE [Suspect]
     Route: 042
  3. REMICADE [Suspect]
     Dosage: 5MG/KG
     Route: 042
  4. IMURAN [Concomitant]
  5. IMURAN [Concomitant]
  6. WARFARIN [Concomitant]
  7. FLAGYL [Concomitant]
  8. LOMOTIL [Concomitant]
  9. VITAMIN B-12 [Concomitant]
  10. QUININE [Concomitant]

REACTIONS (9)
  - ABDOMINAL PAIN [None]
  - CHILLS [None]
  - CROHN'S DISEASE [None]
  - DECREASED APPETITE [None]
  - EAR PAIN [None]
  - INFLUENZA LIKE ILLNESS [None]
  - MALAISE [None]
  - NAUSEA [None]
  - SKIN CANCER [None]
